FAERS Safety Report 11363592 (Version 2)
Quarter: 2015Q4

REPORT INFORMATION
  Report Type: Spontaneous
  Country: GB (occurrence: GB)
  Receive Date: 20150811
  Receipt Date: 20151002
  Transmission Date: 20160304
  Serious: Yes (Death, Other)
  Sender: FDA-Public Use
  Company Number: GB-ACCORD-032776

PATIENT
  Age: 48 Year
  Sex: Male
  Weight: 79 kg

DRUGS (19)
  1. ZOPICLONE [Suspect]
     Active Substance: ZOPICLONE
     Indication: PRODUCT USED FOR UNKNOWN INDICATION
  2. LACTULOSE. [Concomitant]
     Active Substance: LACTULOSE
  3. LANSOPRAZOLE. [Concomitant]
     Active Substance: LANSOPRAZOLE
  4. LISINOPRIL. [Concomitant]
     Active Substance: LISINOPRIL
  5. GLICLAZIDE [Concomitant]
     Active Substance: GLICLAZIDE
  6. TRAMADOL/TRAMADOL HYDROCHLORIDE [Suspect]
     Active Substance: TRAMADOL HYDROCHLORIDE
     Indication: PRODUCT USED FOR UNKNOWN INDICATION
  7. CROMOGLICIC ACID [Concomitant]
     Active Substance: CROMOLYN
  8. METOCLOPRAMIDE. [Concomitant]
     Active Substance: METOCLOPRAMIDE
  9. SAXAGLIPTIN [Concomitant]
     Active Substance: SAXAGLIPTIN
  10. ARIPIPRAZOLE. [Concomitant]
     Active Substance: ARIPIPRAZOLE
  11. ATORVASTATIN [Concomitant]
     Active Substance: ATORVASTATIN
  12. ACIDEX [Concomitant]
     Active Substance: CALCIUM CARBONATE\SODIUM ALGINATE\SODIUM BICARBONATE
  13. ACRIVASTINE [Concomitant]
     Active Substance: ACRIVASTINE
  14. BECLOMETASONE [Concomitant]
     Active Substance: BECLOMETHASONE DIPROPIONATE
  15. ZAPONEX [Suspect]
     Active Substance: CLOZAPINE
     Indication: SCHIZOPHRENIA
     Route: 048
     Dates: start: 20140304, end: 20150505
  16. SALBUTAMOL [Concomitant]
     Active Substance: ALBUTEROL
  17. SERETIDE [Concomitant]
     Active Substance: FLUTICASONE FUROATE\SALMETEROL XINAFOATE
  18. DIAZEPAM. [Concomitant]
     Active Substance: DIAZEPAM
  19. TRIHEXYPHENIDYL [Concomitant]
     Active Substance: TRIHEXYPHENIDYL

REACTIONS (12)
  - Antipsychotic drug level increased [Not Recovered/Not Resolved]
  - Hepatomegaly [Not Recovered/Not Resolved]
  - Toxicity to various agents [Fatal]
  - Intentional overdose [Fatal]
  - Completed suicide [Fatal]
  - Aortic arteriosclerosis [Not Recovered/Not Resolved]
  - Platelet count increased [Not Recovered/Not Resolved]
  - Arteriosclerosis coronary artery [Not Recovered/Not Resolved]
  - Renal disorder [Not Recovered/Not Resolved]
  - Pulmonary oedema [Not Recovered/Not Resolved]
  - Spleen congestion [Not Recovered/Not Resolved]
  - Cardiomegaly [Not Recovered/Not Resolved]

NARRATIVE: CASE EVENT DATE: 20150303
